FAERS Safety Report 6744025-X (Version None)
Quarter: 2010Q2

REPORT INFORMATION
  Report Type: 
  Country: None (occurrence: None)
  Receive Date: 20100527
  Receipt Date: 20100521
  Transmission Date: 20101027
  Serious: Yes (Hospitalization)
  Sender: FDA-Public Use
  Company Number: A0787827A

PATIENT
  Age: 53 Year
  Sex: Male
  Weight: 123.2 kg

DRUGS (9)
  1. AVANDIA [Suspect]
     Indication: DIABETES MELLITUS
     Dosage: 4MG TWICE PER DAY
     Route: 048
     Dates: start: 20040101, end: 20050101
  2. AVANDAMET [Suspect]
     Indication: DIABETES MELLITUS
     Route: 048
     Dates: start: 20020101
  3. OMEPRAZOLE [Concomitant]
  4. LOPRESSOR [Concomitant]
  5. AMARYL [Concomitant]
  6. CRESTOR [Concomitant]
  7. SYNTHROID [Concomitant]
  8. TRICOR [Concomitant]
  9. NORVASC [Concomitant]

REACTIONS (3)
  - CONGESTIVE CARDIOMYOPATHY [None]
  - CORONARY ARTERY DISEASE [None]
  - MYOCARDIAL INFARCTION [None]
